FAERS Safety Report 5933916-5 (Version None)
Quarter: 2008Q4

REPORT INFORMATION
  Report Type: 
  Country: None (occurrence: None)
  Receive Date: 20081027
  Receipt Date: 20081014
  Transmission Date: 20090506
  Serious: Yes (Hospitalization, Other)
  Sender: FDA-Public Use
  Company Number: 230655K08USA

PATIENT
  Age: 54 Year
  Sex: Female

DRUGS (8)
  1. REBIF [Suspect]
     Indication: MULTIPLE SCLEROSIS
     Dosage: 44 MCG, 3 IN 1 WEEKS, SUBCUTANEOUS
     Route: 058
     Dates: start: 20040724
  2. ATENOLOL [Concomitant]
  3. LEVOTHYROXINE ILEVOTHYROXINE) [Concomitant]
  4. TRICOR [Concomitant]
  5. LIPITOR [Concomitant]
  6. PROZAC [Concomitant]
  7. ASPIRIN [Concomitant]
  8. CALCIUM (CALCIUM-SANDOZ) [Concomitant]

REACTIONS (9)
  - ADHESION [None]
  - ATRIAL FIBRILLATION [None]
  - CERVIX HAEMORRHAGE UTERINE [None]
  - DIVERTICULITIS [None]
  - OVARIAN CYST [None]
  - PAIN [None]
  - POST PROCEDURAL COMPLICATION [None]
  - UTERINE HAEMORRHAGE [None]
  - VAGINAL HAEMORRHAGE [None]
